FAERS Safety Report 16607818 (Version 2)
Quarter: 2019Q3

REPORT INFORMATION
  Report Type: Spontaneous
  Country: JP (occurrence: JP)
  Receive Date: 20190722
  Receipt Date: 20190725
  Transmission Date: 20191004
  Serious: Yes (Other)
  Sender: FDA-Public Use
  Company Number: JP-ACCORD-139296

PATIENT
  Age: 55 Year
  Sex: Female

DRUGS (3)
  1. GEMCITABINE/GEMCITABINE HYDROCHLORIDE [Suspect]
     Active Substance: GEMCITABINE\GEMCITABINE HYDROCHLORIDE
     Indication: ADENOCARCINOMA
     Dosage: 1,000 MG/M^2/DAY, DAY 1, 8, 15, REPEATED EVERY 4 WEEKS
     Dates: start: 201304
  2. CISPLATIN. [Suspect]
     Active Substance: CISPLATIN
     Indication: ADENOCARCINOMA
     Dosage: ON DAY 2 AND 35 MG/M^2/DAY, DAY 2, DAY 9, REPEATED EVERY 4 WEEKS FROM 2015 (CYCLE)
     Dates: start: 201304
  3. CISPLATIN. [Suspect]
     Active Substance: CISPLATIN
     Indication: ADENOCARCINOMA
     Dosage: ON DAY 2,9 REPEATED EVERY 4 WEEKS

REACTIONS (3)
  - Haematotoxicity [Unknown]
  - Renal impairment [Recovered/Resolved]
  - Hydronephrosis [Unknown]

NARRATIVE: CASE EVENT DATE: 2015
